FAERS Safety Report 19778653 (Version 2)
Quarter: 2021Q4

REPORT INFORMATION
  Report Type: Report from Study
  Country: US (occurrence: US)
  Receive Date: 20210902
  Receipt Date: 20211111
  Transmission Date: 20220303
  Serious: Yes (Hospitalization)
  Sender: FDA-Public Use
  Company Number: US-UCBSA-2021040880

PATIENT
  Age: 36 Year
  Sex: Male

DRUGS (3)
  1. BRIVARACETAM [Suspect]
     Active Substance: BRIVARACETAM
     Indication: Seizure
     Dosage: 5 MILLILITER, 2X/DAY (BID)
     Route: 048
  2. BRIVARACETAM [Suspect]
     Active Substance: BRIVARACETAM
     Dosage: 10 MILLILITER, 2X/DAY (BID)
     Route: 048
  3. BRIVIACT [Suspect]
     Active Substance: BRIVARACETAM
     Indication: Seizure
     Dosage: CRUSHING TABLETS

REACTIONS (5)
  - Seizure [Not Recovered/Not Resolved]
  - Intentional product misuse [Unknown]
  - Wrong technique in product usage process [Unknown]
  - Product prescribing error [Unknown]
  - Product availability issue [Unknown]

NARRATIVE: CASE EVENT DATE: 20210823
